FAERS Safety Report 19141636 (Version 1)
Quarter: 2021Q2

REPORT INFORMATION
  Report Type: Spontaneous
  Country: NL (occurrence: NL)
  Receive Date: 20210415
  Receipt Date: 20210415
  Transmission Date: 20210717
  Serious: Yes (Hospitalization)
  Sender: FDA-Public Use
  Company Number: NVSC2021NL077973

PATIENT
  Age: 61 Year
  Sex: Male
  Weight: 80 kg

DRUGS (2)
  1. METHOTREXAAT SANDOZ 2,5 MG, TABLETTEN [Suspect]
     Active Substance: METHOTREXATE SODIUM
     Indication: POLYMYALGIA RHEUMATICA
     Dosage: 15 MG, QW (1X/W 6 STUKS)
     Route: 065
     Dates: start: 202102, end: 20210308
  2. METHYLPREDNISOLON [Concomitant]
     Active Substance: METHYLPREDNISOLONE
     Indication: PRODUCT USED FOR UNKNOWN INDICATION
     Dosage: UNK (I.M. 80MG/4WEKEN)
     Route: 065

REACTIONS (1)
  - Atrial fibrillation [Recovering/Resolving]

NARRATIVE: CASE EVENT DATE: 20210304
